FAERS Safety Report 7439725-2 (Version None)
Quarter: 2011Q2

REPORT INFORMATION
  Report Type: 
  Country: None (occurrence: None)
  Receive Date: 20110427
  Receipt Date: 20101110
  Transmission Date: 20111010
  Serious: No
  Sender: FDA-Public Use
  Company Number: US-MYLANLABS-2010S1020959

PATIENT
  Sex: Female

DRUGS (1)
  1. METHIMAZOLE [Suspect]
     Indication: HYPERTHYROIDISM

REACTIONS (14)
  - YELLOW SKIN [None]
  - ALOPECIA [None]
  - RASH [None]
  - PYREXIA [None]
  - OEDEMA PERIPHERAL [None]
  - ARTHRALGIA [None]
  - ASPARTATE AMINOTRANSFERASE INCREASED [None]
  - JOINT SWELLING [None]
  - OCULAR ICTERUS [None]
  - DECREASED APPETITE [None]
  - BLOOD ALKALINE PHOSPHATASE INCREASED [None]
  - PARAESTHESIA [None]
  - ALANINE AMINOTRANSFERASE INCREASED [None]
  - MYALGIA [None]
